FAERS Safety Report 7422109-0 (Version None)
Quarter: 2011Q2

REPORT INFORMATION
  Report Type: 
  Country: None (occurrence: None)
  Receive Date: 20110418
  Receipt Date: 20090512
  Transmission Date: 20111010
  Serious: Yes (Other)
  Sender: FDA-Public Use
  Company Number: DE-GENENTECH-316836

PATIENT
  Age: 95 Year
  Sex: Female

DRUGS (2)
  1. LUCENTIS [Suspect]
     Indication: MACULAR DEGENERATION
     Dosage: UNK
     Route: 031
  2. VITALUX [Concomitant]
     Indication: VISUAL ACUITY REDUCED

REACTIONS (2)
  - EYE HAEMORRHAGE [None]
  - RETINAL SCAR [None]
